FAERS Safety Report 4519244-3 (Version None)
Quarter: 2004Q4

REPORT INFORMATION
  Report Type: 
  Country: None (occurrence: None)
  Receive Date: 20041201
  Receipt Date: 20041122
  Transmission Date: 20050328
  Serious: Yes (Death, Life-Threatening, Hospitalization, Other)
  Sender: FDA-Public Use
  Company Number: 2004012638

PATIENT
  Age: 69 Year
  Sex: Male
  Weight: 99 kg

DRUGS (14)
  1. VFEND [Suspect]
     Indication: FUNGAL INFECTION
     Dosage: 400 MG (200 MG, 2IN 1 D), INTRAVENOUS
     Route: 042
     Dates: start: 20040216, end: 20040217
  2. CEFUROXIME [Concomitant]
  3. MULTI-VITAMINS [Concomitant]
  4. PANTOPRAZOLE SODIUM [Concomitant]
  5. ACETAMINOPHEN [Concomitant]
  6. NITROGLYCERIN [Concomitant]
  7. COMBIVENT [Concomitant]
  8. BUDESONIDE (BUDESONIDE) [Concomitant]
  9. THEOPHYLLINE [Concomitant]
  10. FUROSEMIDE [Concomitant]
  11. INSULIN [Concomitant]
  12. AMPHOTERICIN B [Concomitant]
  13. METRONIDAZOLE [Concomitant]
  14. MEROPENEM (MEROPENEM) [Concomitant]

REACTIONS (10)
  - BLOOD PRESSURE DECREASED [None]
  - CIRCULATORY COLLAPSE [None]
  - DIALYSIS [None]
  - FATIGUE [None]
  - INCISION SITE HAEMORRHAGE [None]
  - LUNG INFILTRATION [None]
  - PANCREATITIS HAEMORRHAGIC [None]
  - PNEUMONIA [None]
  - POST PROCEDURAL HAEMATOMA [None]
  - SPUTUM RETENTION [None]
